FAERS Safety Report 6921268-3 (Version None)
Quarter: 2010Q3

REPORT INFORMATION
  Report Type: 
  Country: None (occurrence: None)
  Receive Date: 20100812
  Receipt Date: 20100803
  Transmission Date: 20110219
  Serious: Yes (Hospitalization)
  Sender: FDA-Public Use
  Company Number: A0875256A

PATIENT
  Age: 62 Year
  Sex: Male

DRUGS (1)
  1. AVANDIA [Suspect]
     Dosage: 8MG PER DAY
     Route: 048
     Dates: start: 19991123, end: 20061106

REACTIONS (11)
  - AFFECT LABILITY [None]
  - ATRIAL FIBRILLATION [None]
  - BACK INJURY [None]
  - CARDIAC DISORDER [None]
  - CEREBRAL INFARCTION [None]
  - CONCUSSION [None]
  - DYSPHAGIA [None]
  - FALL [None]
  - FRACTURED COCCYX [None]
  - MUSCULAR WEAKNESS [None]
  - SPEECH DISORDER [None]
